FAERS Safety Report 21027573 (Version 1)
Quarter: 2022Q2

REPORT INFORMATION
  Report Type: Spontaneous
  Country: CN (occurrence: None)
  Receive Date: 20220630
  Receipt Date: 20220630
  Transmission Date: 20220721
  Serious: Yes (Hospitalization, Other)
  Sender: FDA-Public Use
  Company Number: 2022A234846

PATIENT
  Age: 27733 Day
  Sex: Female
  Weight: 35 kg

DRUGS (3)
  1. ROSUVASTATIN CALCIUM [Suspect]
     Active Substance: ROSUVASTATIN CALCIUM
     Indication: Pneumonia lipoid
     Route: 048
     Dates: start: 20220422, end: 20220528
  2. ROSUVASTATIN CALCIUM [Suspect]
     Active Substance: ROSUVASTATIN CALCIUM
     Indication: Administration site plaque
     Route: 048
     Dates: start: 20220422, end: 20220528
  3. KETOACID [Concomitant]
     Indication: Renal replacement therapy
     Route: 048
     Dates: end: 20220528

REACTIONS (3)
  - Renal failure [Recovering/Resolving]
  - Chest discomfort [Unknown]
  - Decreased appetite [Unknown]

NARRATIVE: CASE EVENT DATE: 20220523
